FAERS Safety Report 4517656-5 (Version None)
Quarter: 2004Q4

REPORT INFORMATION
  Report Type: 
  Country: None (occurrence: None)
  Receive Date: 20041203
  Receipt Date: 20041129
  Transmission Date: 20050328
  Serious: Yes (Death)
  Sender: FDA-Public Use
  Company Number: US-JNJFOC-20041200186

PATIENT
  Sex: Female

DRUGS (5)
  1. RISPERDAL [Suspect]
     Route: 049
  2. SEROQUEL [Concomitant]
     Route: 049
  3. CARBATROL [Concomitant]
     Route: 049
  4. ZITHROMAX [Concomitant]
     Route: 049
  5. DEPO-PROVERA [Concomitant]
     Route: 030

REACTIONS (4)
  - BRONCHITIS [None]
  - DYSPNOEA [None]
  - PAIN IN EXTREMITY [None]
  - PULMONARY EMBOLISM [None]
